FAERS Safety Report 5597921-3 (Version None)
Quarter: 2007Q4

REPORT INFORMATION
  Report Type: 
  Country: None (occurrence: None)
  Receive Date: 20071226
  Receipt Date: 20070119
  Transmission Date: 20080405
  Serious: Yes (Hospitalization)
  Sender: FDA-Public Use
  Company Number: 230210

PATIENT
  Age: 55 Year
  Sex: Male
  Weight: 108.8 kg

DRUGS (1)
  1. RAPTIVA [Suspect]
     Indication: PSORIASIS
     Dosage: 1.1 ML, 1/WEEK, SUBCUTANEOUS
     Route: 058

REACTIONS (4)
  - ARTHRALGIA [None]
  - PSORIATIC ARTHROPATHY [None]
  - RASH [None]
  - STREPTOCOCCAL INFECTION [None]
